FAERS Safety Report 23056757 (Version 2)
Quarter: 2025Q3

REPORT INFORMATION
  Report Type: Spontaneous
  Country: US (occurrence: US)
  Receive Date: 20231012
  Receipt Date: 20250829
  Transmission Date: 20251021
  Serious: Yes (Other)
  Sender: CHEPLAPHARM
  Company Number: US-ROCHE-2503032

PATIENT
  Age: 53 Year
  Sex: Female
  Weight: 97.155 kg

DRUGS (32)
  1. CLONAZEPAM [Suspect]
     Active Substance: CLONAZEPAM
     Indication: Product used for unknown indication
     Route: 048
  2. RITUXIMAB [Suspect]
     Active Substance: RITUXIMAB
     Route: 042
  3. MYCOPHENOLATE MOFETIL [Suspect]
     Active Substance: MYCOPHENOLATE MOFETIL
     Indication: Anti-neutrophil cytoplasmic antibody positive vasculitis
     Dosage: TWO TABLET TWICE A DAY
     Route: 048
     Dates: start: 20240326
  4. MYCOPHENOLATE MOFETIL [Suspect]
     Active Substance: MYCOPHENOLATE MOFETIL
     Indication: Arteritis
     Dosage: TWO TABLET TWICE A DAY
     Route: 048
     Dates: start: 20240326
  5. MYCOPHENOLATE MOFETIL [Suspect]
     Active Substance: MYCOPHENOLATE MOFETIL
     Indication: Granulomatosis with polyangiitis
     Dosage: TWO TABLET TWICE A DAY
     Route: 048
     Dates: start: 20240326
  6. MYCOPHENOLATE MOFETIL [Suspect]
     Active Substance: MYCOPHENOLATE MOFETIL
     Indication: Polyarthritis
     Dosage: TWO TABLET TWICE A DAY
     Route: 048
     Dates: start: 20240326
  7. MYCOPHENOLATE MOFETIL [Suspect]
     Active Substance: MYCOPHENOLATE MOFETIL
     Indication: Anti-neutrophil cytoplasmic antibody positive vasculitis
     Dosage: 1000 MG, BID
     Route: 048
  8. MYCOPHENOLATE MOFETIL [Suspect]
     Active Substance: MYCOPHENOLATE MOFETIL
     Indication: Arteritis
     Dosage: 1000 MG, BID
     Route: 048
  9. MYCOPHENOLATE MOFETIL [Suspect]
     Active Substance: MYCOPHENOLATE MOFETIL
     Indication: Granulomatosis with polyangiitis
     Dosage: 1000 MG, BID
     Route: 048
  10. MYCOPHENOLATE MOFETIL [Suspect]
     Active Substance: MYCOPHENOLATE MOFETIL
     Indication: Polyarthritis
     Dosage: 1000 MG, BID
     Route: 048
  11. MYCOPHENOLATE MOFETIL [Suspect]
     Active Substance: MYCOPHENOLATE MOFETIL
     Indication: Anti-neutrophil cytoplasmic antibody positive vasculitis
     Route: 048
  12. MYCOPHENOLATE MOFETIL [Suspect]
     Active Substance: MYCOPHENOLATE MOFETIL
     Indication: Arteritis
     Route: 048
  13. MYCOPHENOLATE MOFETIL [Suspect]
     Active Substance: MYCOPHENOLATE MOFETIL
     Indication: Granulomatosis with polyangiitis
     Route: 048
  14. MYCOPHENOLATE MOFETIL [Suspect]
     Active Substance: MYCOPHENOLATE MOFETIL
     Indication: Polyarthritis
     Route: 048
  15. OMALIZUMAB [Suspect]
     Active Substance: OMALIZUMAB
  16. PREDNISONE [Concomitant]
     Active Substance: PREDNISONE
     Dosage: 10 MG, DAILY
     Route: 048
  17. QUETIAPINE FUMARATE [Concomitant]
     Active Substance: QUETIAPINE FUMARATE
     Route: 048
  18. FOLIC ACID [Concomitant]
     Active Substance: FOLIC ACID
     Route: 048
  19. METHOTREXATE [Concomitant]
     Active Substance: METHOTREXATE
     Dosage: 2.5 MG, DAILY
     Route: 048
  20. MONTELUKAST [Concomitant]
     Active Substance: MONTELUKAST
     Dosage: 10 MG, DAILY
     Route: 048
  21. MAGNESIUM [Concomitant]
     Active Substance: MAGNESIUM
     Dosage: 250 MG, DAILY
     Route: 048
  22. ROPINIROLE [Concomitant]
     Active Substance: ROPINIROLE
     Route: 048
  23. GABAPENTIN [Concomitant]
     Active Substance: GABAPENTIN
     Dosage: 1800 MG, DAILY
     Route: 048
  24. CETIRIZINE [Concomitant]
     Active Substance: CETIRIZINE HYDROCHLORIDE
     Route: 048
  25. MIRTAZAPINE [Concomitant]
     Active Substance: MIRTAZAPINE
     Route: 048
  26. RANITIDINE HYDROCHLORIDE [Concomitant]
     Active Substance: RANITIDINE HYDROCHLORIDE
     Route: 048
  27. ESOMEPRAZOLE [Concomitant]
     Active Substance: ESOMEPRAZOLE
     Route: 048
  28. SUMATRIPTAN [Concomitant]
     Active Substance: SUMATRIPTAN
  29. EPINEPHRINE [Concomitant]
     Active Substance: EPINEPHRINE
     Route: 030
  30. PROAIR HFA [Concomitant]
     Active Substance: ALBUTEROL SULFATE
     Route: 055
  31. HYDROXYCHLOROQUINE SULFATE [Concomitant]
     Active Substance: HYDROXYCHLOROQUINE SULFATE
     Route: 048
  32. ALBUTEROL SULFATE [Concomitant]
     Active Substance: ALBUTEROL SULFATE
     Route: 055

REACTIONS (39)
  - Vasculitic ulcer [Unknown]
  - Diarrhoea [Unknown]
  - Dizziness [Unknown]
  - Loss of consciousness [Unknown]
  - Musculoskeletal stiffness [Unknown]
  - Peripheral swelling [Unknown]
  - Pain [Unknown]
  - Memory impairment [Unknown]
  - Fatigue [Unknown]
  - Dysarthria [Unknown]
  - Decreased activity [Unknown]
  - Gait inability [Unknown]
  - C-reactive protein increased [Unknown]
  - Rash [Unknown]
  - Pain [Unknown]
  - Weight increased [Unknown]
  - Pustule [Unknown]
  - Dyspnoea [Unknown]
  - Stomatitis [Unknown]
  - Vulvovaginal rash [Unknown]
  - Headache [Unknown]
  - Tinnitus [Unknown]
  - Feeling hot [Unknown]
  - Decreased appetite [Unknown]
  - Nausea [Unknown]
  - Tremor [Unknown]
  - Coordination abnormal [Unknown]
  - Paraesthesia [Unknown]
  - Hypoaesthesia [Unknown]
  - Stress fracture [Unknown]
  - Pain in extremity [Unknown]
  - Somnolence [Unknown]
  - Fall [Unknown]
  - Asthenia [Unknown]
  - Brain fog [Unknown]
  - Drug hypersensitivity [Unknown]
  - Upper respiratory tract infection [Unknown]
  - Obesity [Unknown]
  - Pain in extremity [Unknown]

NARRATIVE: CASE EVENT DATE: 20201201
